FAERS Safety Report 17829835 (Version 1)
Quarter: 2020Q2

REPORT INFORMATION
  Report Type: Spontaneous
  Country: GB (occurrence: GB)
  Receive Date: 20200527
  Receipt Date: 20200527
  Transmission Date: 20200714
  Serious: Yes (Other)
  Sender: FDA-Public Use
  Company Number: GB-ELI_LILLY_AND_COMPANY-GB202005009740

PATIENT
  Age: 55 Year
  Sex: Female
  Weight: 79 kg

DRUGS (5)
  1. UBIDECARENONE [Concomitant]
     Active Substance: UBIDECARENONE
  2. PARACETAMOL [Concomitant]
     Active Substance: ACETAMINOPHEN
  3. DULOXETINE HYDROCHLORIDE. [Suspect]
     Active Substance: DULOXETINE HYDROCHLORIDE
     Indication: NEURALGIA
     Dosage: 60 MG, UNKNOWN
     Route: 048
     Dates: start: 20200501, end: 20200501
  4. MAGNESIUM [Concomitant]
     Active Substance: MAGNESIUM
     Dosage: 200 MG
  5. COD-LIVER OIL [Concomitant]
     Active Substance: COD LIVER OIL

REACTIONS (12)
  - Coordination abnormal [Recovering/Resolving]
  - Nausea [Recovering/Resolving]
  - Fear [Unknown]
  - Muscle twitching [Recovering/Resolving]
  - Muscle spasms [Unknown]
  - Feeling hot [Unknown]
  - Personality change [Recovering/Resolving]
  - Tremor [Recovering/Resolving]
  - Mania [Recovering/Resolving]
  - Dysuria [Recovering/Resolving]
  - Headache [Recovered/Resolved]
  - Feeling abnormal [Unknown]

NARRATIVE: CASE EVENT DATE: 20200502
